FAERS Safety Report 21205238 (Version 1)
Quarter: 2022Q3

REPORT INFORMATION
  Report Type: Spontaneous
  Country: NZ (occurrence: NZ)
  Receive Date: 20220812
  Receipt Date: 20220812
  Transmission Date: 20221026
  Serious: Yes (Hospitalization, Other)
  Sender: FDA-Public Use
  Company Number: NZ-Nexus Pharma-000088

PATIENT
  Age: 84 Year
  Sex: Female

DRUGS (3)
  1. COLISTIMETHATE SODIUM [Suspect]
     Active Substance: COLISTIMETHATE SODIUM
     Indication: Peritonitis
     Dosage: 75 MG TWICE DAILY, RESTARTED THE FOLLOWING DAY AT 50 MG TWICE DAILY, REDUCED TO 50 MG IV DAILY
     Route: 042
     Dates: start: 2017
  2. CEFAZOLIN [Concomitant]
     Active Substance: CEFAZOLIN
     Indication: Evidence based treatment
     Route: 033
     Dates: start: 2017
  3. AMIKACIN [Concomitant]
     Active Substance: AMIKACIN
     Indication: Evidence based treatment
     Route: 033
     Dates: start: 2017

REACTIONS (5)
  - Somnolence [Recovering/Resolving]
  - Respiratory failure [Unknown]
  - Confusional state [Recovering/Resolving]
  - Face oedema [Unknown]
  - Hypervolaemia [Unknown]

NARRATIVE: CASE EVENT DATE: 20170101
